FAERS Safety Report 6617498-0 (Version None)
Quarter: 2010Q1

REPORT INFORMATION
  Report Type: 
  Country: None (occurrence: None)
  Receive Date: 20100302
  Receipt Date: 20100216
  Transmission Date: 20100710
  Serious: Yes (Hospitalization)
  Sender: FDA-Public Use
  Company Number: 20100076

PATIENT
  Age: 35 Year
  Sex: Female

DRUGS (12)
  1. EPINEPHRINE [Suspect]
     Indication: EPIDURAL ANAESTHESIA
     Dosage: UNKNOWN EPIDURAL
     Route: 008
  2. PHENYLEPHRINE HCL [Suspect]
     Dosage: EPIDURAL
     Route: 008
  3. EPHEDROSE SOLUTION [Suspect]
     Dosage: EPIDURAL
     Route: 008
  4. GLYCOPYRROLATE INJECTIONS, USP (4601-25) (GLYCOPYRROLATE) [Concomitant]
  5. METOPROLOL INJECTION, USP (1355-10) (METOPROLOL) [Concomitant]
  6. LIDOCAINE WITH BICARBONATE [Concomitant]
  7. BETA BLOCKERS [Concomitant]
  8. LABETALOL HCL [Concomitant]
  9. ASPIRIN [Concomitant]
  10. FENTANYL [Concomitant]
  11. BUPIVACAINE HCL [Concomitant]
  12. ESMOLOL HCL [Concomitant]

REACTIONS (12)
  - ARTERIOSPASM CORONARY [None]
  - BLOOD PRESSURE DIASTOLIC DECREASED [None]
  - BLOOD PRESSURE INCREASED [None]
  - BRADYCARDIA [None]
  - DRUG EXPOSURE DURING PREGNANCY [None]
  - ELECTROCARDIOGRAM ST SEGMENT DEPRESSION [None]
  - ELECTROCARDIOGRAM T WAVE ABNORMAL [None]
  - HEADACHE [None]
  - HYPOKINESIA [None]
  - MITRAL VALVE INCOMPETENCE [None]
  - PULMONARY OEDEMA [None]
  - STRESS CARDIOMYOPATHY [None]
